FAERS Safety Report 7243027-7 (Version None)
Quarter: 2011Q1

REPORT INFORMATION
  Report Type: 
  Country: None (occurrence: None)
  Receive Date: 20110125
  Receipt Date: 20100923
  Transmission Date: 20110831
  Serious: No
  Sender: FDA-Public Use
  Company Number: US-AMGEN-KDL440542

PATIENT
  Age: 88 Year
  Sex: Female

DRUGS (1)
  1. PROLIA [Suspect]
     Indication: OSTEOPOROSIS POSTMENOPAUSAL
     Dosage: UNK UNK, UNK
     Dates: start: 20100823

REACTIONS (3)
  - SENSATION OF HEAVINESS [None]
  - PAIN IN EXTREMITY [None]
  - BLOOD CALCIUM ABNORMAL [None]
